FAERS Safety Report 20981200 (Version 5)
Quarter: 2022Q4

REPORT INFORMATION
  Report Type: Report from Study
  Country: FR (occurrence: FR)
  Receive Date: 20220620
  Receipt Date: 20221122
  Transmission Date: 20230113
  Serious: Yes (Hospitalization)
  Sender: FDA-Public Use
  Company Number: FR-GLAXOSMITHKLINE-FR2022088444

PATIENT

DRUGS (11)
  1. BELANTAMAB MAFODOTIN [Suspect]
     Active Substance: BELANTAMAB MAFODOTIN
     Indication: Plasma cell myeloma
     Dosage: 87.50 MG, CYC
     Route: 042
     Dates: start: 20210825, end: 20210825
  2. BELANTAMAB MAFODOTIN [Suspect]
     Active Substance: BELANTAMAB MAFODOTIN
     Dosage: 87.40 MG, CYC
     Route: 042
     Dates: start: 20210916, end: 20211008
  3. BELANTAMAB MAFODOTIN [Suspect]
     Active Substance: BELANTAMAB MAFODOTIN
     Dosage: 87.50 MG, CYC
     Route: 042
     Dates: start: 20211029, end: 20211029
  4. BELANTAMAB MAFODOTIN [Suspect]
     Active Substance: BELANTAMAB MAFODOTIN
     Dosage: 87.40 MG, CYC
     Route: 042
     Dates: start: 20211210, end: 20211210
  5. BELANTAMAB MAFODOTIN [Suspect]
     Active Substance: BELANTAMAB MAFODOTIN
     Dosage: 87.50 MG, CYC
     Route: 042
     Dates: start: 20211230
  6. NIROGACESTAT [Suspect]
     Active Substance: NIROGACESTAT
     Indication: Plasma cell myeloma
     Dosage: 2 DF (TABLETS), BID
     Route: 048
     Dates: start: 20210825, end: 20210829
  7. NIROGACESTAT [Suspect]
     Active Substance: NIROGACESTAT
     Dosage: 1 DF TABLET, BID
     Route: 048
     Dates: start: 20210907, end: 20211028
  8. NIROGACESTAT [Suspect]
     Active Substance: NIROGACESTAT
     Dosage: 1 DF TABLET, BID
     Route: 048
     Dates: start: 20211029, end: 20211230
  9. NIROGACESTAT [Suspect]
     Active Substance: NIROGACESTAT
     Dosage: 1 DF TABLET, BID
     Route: 048
     Dates: start: 20211231, end: 20220602
  10. NIROGACESTAT [Suspect]
     Active Substance: NIROGACESTAT
     Dosage: 1 DF TABLET, BID
     Route: 048
     Dates: start: 20220107, end: 20220303
  11. NIROGACESTAT [Suspect]
     Active Substance: NIROGACESTAT
     Dosage: 1 DF TABLET, BID
     Route: 048
     Dates: start: 20220525

REACTIONS (1)
  - Streptococcal infection [Recovered/Resolved]

NARRATIVE: CASE EVENT DATE: 20220530
